FAERS Safety Report 14257437 (Version 10)
Quarter: 2019Q3

REPORT INFORMATION
  Report Type: Spontaneous
  Country: IT (occurrence: IT)
  Receive Date: 20171207
  Receipt Date: 20190913
  Transmission Date: 20191004
  Serious: Yes (Death, Life-Threatening, Hospitalization, Other)
  Sender: FDA-Public Use
  Company Number: IT-MACLEODS PHARMACEUTICALS US LTD-MAC2017006440

PATIENT

DRUGS (17)
  1. LEVOFLOXACIN. [Suspect]
     Active Substance: LEVOFLOXACIN
     Indication: STAPHYLOCOCCAL INFECTION
     Dosage: 500 MG, UNK (LOADING DOSE),1 TOTAL
     Route: 048
     Dates: start: 20150521
  2. RIFAMPICIN [Interacting]
     Active Substance: RIFAMPIN
     Indication: STAPHYLOCOCCAL SKIN INFECTION
     Dosage: UNK
     Route: 065
  3. FENTANYL. [Interacting]
     Active Substance: FENTANYL
     Indication: PAIN IN EXTREMITY
     Dosage: 200 ?G, UNK (TABLET)
     Route: 048
     Dates: start: 2015, end: 20150602
  4. VANCOMYCIN [Interacting]
     Active Substance: VANCOMYCIN
     Indication: STAPHYLOCOCCAL SKIN INFECTION
     Dosage: 1 G, UNK  (LOADING DOSE), 1 TOTAL, INJECTION
     Route: 042
     Dates: start: 20150521, end: 20150521
  5. VANCOMYCIN [Interacting]
     Active Substance: VANCOMYCIN
     Dosage: 500 MG, (MAINTENANCE DOSE; AT THE END OF DIALYSIS;INJECTION), 1 CYCLE
     Route: 042
     Dates: start: 20150522
  6. FENTANYL. [Interacting]
     Active Substance: FENTANYL
     Dosage: 100 ?G, UNK (TABLET), 100 MCG 1 TABLET UPGRADEABLE TO 200 MCG.
     Route: 048
     Dates: start: 20150602, end: 20150602
  7. FENTANYL. [Interacting]
     Active Substance: FENTANYL
     Dosage: 200 MILLIGRAM
     Route: 065
     Dates: start: 20150521
  8. FENTANYL. [Interacting]
     Active Substance: FENTANYL
     Dosage: 100 UNK TABLET
     Route: 048
     Dates: start: 20150602, end: 20150602
  9. FENTANYL. [Interacting]
     Active Substance: FENTANYL
     Indication: ANGIOPATHY
     Dosage: 25 DF, PER HOUR
     Route: 062
     Dates: start: 20150521
  10. RIFAMPICIN [Interacting]
     Active Substance: RIFAMPIN
     Indication: STAPHYLOCOCCAL INFECTION
     Dosage: 300 MG, QD
     Route: 042
     Dates: start: 20150521
  11. RIFAMPICIN [Interacting]
     Active Substance: RIFAMPIN
     Indication: PRODUCT USED FOR UNKNOWN INDICATION
  12. LEVOFLOXACIN. [Interacting]
     Active Substance: LEVOFLOXACIN
     Indication: STAPHYLOCOCCAL SKIN INFECTION
     Dosage: 125 MG, QD (MAINTENENCE DOSE)
     Route: 048
     Dates: start: 20150522
  13. VANCOMYCIN [Interacting]
     Active Substance: VANCOMYCIN
     Indication: STAPHYLOCOCCAL INFECTION
     Dosage: UNK, BY SWAB APPLIED TO A LEFT FOOT ULCER POSITIVE FOR STAPHYLOCOCCUS AUREUS
     Route: 061
     Dates: start: 2015
  14. VANCOMYCIN [Interacting]
     Active Substance: VANCOMYCIN
     Dosage: BY A SWAB APPLIED TO A LEFT FOOT ULCER POSITIVE FOR STAPHYLOCOCCUS AUREUS
     Route: 061
     Dates: start: 2015
  15. FENTANYL. [Interacting]
     Active Substance: FENTANYL
     Indication: PROCEDURAL PAIN
     Dosage: 12 ?G, 1 PER HOUR (TRANSDERMAL PATCH)
     Route: 062
     Dates: start: 20150521, end: 20150528
  16. FENTANYL. [Interacting]
     Active Substance: FENTANYL
     Indication: ISCHAEMIC LIMB PAIN
     Dosage: 100 ?G, UNK
     Route: 065
     Dates: start: 2015
  17. FENTANYL. [Interacting]
     Active Substance: FENTANYL
     Indication: PAIN IN EXTREMITY
     Dosage: 25 ?G, 1 PER HOUR (TRANSDERMAL PATCH)
     Route: 062
     Dates: start: 20150528, end: 20150602

REACTIONS (18)
  - Prescribed overdose [Fatal]
  - Pyrexia [Fatal]
  - Drug interaction [Unknown]
  - Overdose [Unknown]
  - Miosis [Unknown]
  - Off label use [Fatal]
  - Hallucination [Unknown]
  - Drug ineffective [Unknown]
  - Sepsis [Fatal]
  - Generalised non-convulsive epilepsy [Fatal]
  - Sopor [Recovered/Resolved]
  - Depressed level of consciousness [Recovering/Resolving]
  - Toxicity to various agents [Unknown]
  - Somnolence [Recovered/Resolved]
  - Tremor [Unknown]
  - Altered state of consciousness [Recovering/Resolving]
  - Status epilepticus [Recovered/Resolved]
  - Therapy naive [Unknown]

NARRATIVE: CASE EVENT DATE: 20150206
